FAERS Safety Report 24637816 (Version 1)
Quarter: 2024Q4

REPORT INFORMATION
  Report Type: Spontaneous
  Country: IT (occurrence: IT)
  Receive Date: 20241119
  Receipt Date: 20241119
  Transmission Date: 20250114
  Serious: Yes (Hospitalization)
  Sender: ROCHE
  Company Number: None

PATIENT
  Age: 79 Year
  Sex: Female

DRUGS (3)
  1. PERJETA [Suspect]
     Active Substance: PERTUZUMAB
     Indication: Breast cancer
     Dosage: NO INFORMATION REGARDING DOSAGE OR FREQUENCY
     Route: 042
     Dates: start: 20240626
  2. PACLITAXEL [Concomitant]
     Active Substance: PACLITAXEL
  3. TRASTUZUMAB [Concomitant]
     Active Substance: TRASTUZUMAB

REACTIONS (1)
  - Anaphylactic reaction [Recovered/Resolved]

NARRATIVE: CASE EVENT DATE: 20240626
